FAERS Safety Report 11452860 (Version 8)
Quarter: 2016Q2

REPORT INFORMATION
  Report Type: Spontaneous
  Country: FR (occurrence: FR)
  Receive Date: 20150903
  Receipt Date: 20160525
  Transmission Date: 20160815
  Serious: Yes (Hospitalization, Disabling, Other)
  Sender: FDA-Public Use
  Company Number: FR-PFIZER INC-2015257884

PATIENT
  Age: 41 Year
  Sex: Female
  Weight: 52 kg

DRUGS (7)
  1. IBUPROFEN. [Concomitant]
     Active Substance: IBUPROFEN
     Dosage: 1 DF, SINGLE
     Dates: start: 20140331, end: 20140331
  2. MIFEGYNE [Concomitant]
     Active Substance: MIFEPRISTONE
     Dosage: 2 DF, SINGLE
     Route: 048
     Dates: start: 20140328, end: 20140328
  3. CYTOTEC [Suspect]
     Active Substance: MISOPROSTOL
     Indication: ABORTION INDUCED
     Dosage: 2 DF, SINGLE
     Route: 048
     Dates: start: 20140331
  4. CYTOTEC [Suspect]
     Active Substance: MISOPROSTOL
     Dosage: 2 DF, SINGLE
     Route: 067
     Dates: start: 20140331
  5. INEXIUM /01479302/ [Concomitant]
     Active Substance: ESOMEPRAZOLE MAGNESIUM
     Dosage: 1 DF, SINGLE
     Dates: start: 20140331, end: 20140331
  6. ADEPAL [Concomitant]
     Active Substance: ETHINYL ESTRADIOL\LEVONORGESTREL
  7. PARACETAMOL [Concomitant]
     Active Substance: ACETAMINOPHEN
     Dosage: 1 DF, SINGLE
     Dates: start: 20140331, end: 20140331

REACTIONS (4)
  - Cardiac failure [Not Recovered/Not Resolved]
  - Acute coronary syndrome [Recovered/Resolved with Sequelae]
  - Myocardial infarction [Recovered/Resolved with Sequelae]
  - Off label use [Recovered/Resolved with Sequelae]

NARRATIVE: CASE EVENT DATE: 20140331
